FAERS Safety Report 5775276-9 (Version None)
Quarter: 2008Q2

REPORT INFORMATION
  Report Type: 
  Country: None (occurrence: None)
  Receive Date: 20080616
  Receipt Date: 20080616
  Transmission Date: 20081010
  Serious: Yes (Hospitalization)
  Sender: FDA-Public Use
  Company Number: None

PATIENT
  Sex: Female
  Weight: 57.1 kg

DRUGS (2)
  1. CISPLATIN [Suspect]
     Dosage: 119 MG
     Dates: start: 20080401, end: 20080401
  2. GEMCITABINE HCL [Suspect]
     Dosage: 1908 MG
     Dates: end: 20080401

REACTIONS (6)
  - CEREBRAL HAEMORRHAGE [None]
  - CULTURE URINE POSITIVE [None]
  - ESCHERICHIA INFECTION [None]
  - INAPPROPRIATE ANTIDIURETIC HORMONE SECRETION [None]
  - PANCYTOPENIA [None]
  - URINARY RETENTION [None]
